FAERS Safety Report 21104754 (Version 2)
Quarter: 2022Q3

REPORT INFORMATION
  Report Type: Spontaneous
  Country: US (occurrence: US)
  Receive Date: 20220720
  Receipt Date: 20220804
  Transmission Date: 20221026
  Serious: No
  Sender: FDA-Public Use
  Company Number: US-ORGANON-O2207USA001384

PATIENT
  Sex: Female
  Weight: 48 kg

DRUGS (1)
  1. NEXPLANON [Suspect]
     Active Substance: ETONOGESTREL
     Dosage: 1 IMPLANT
     Route: 059
     Dates: start: 2020

REACTIONS (3)
  - Contusion [Unknown]
  - Implant site erythema [Unknown]
  - Implant site warmth [Unknown]
